FAERS Safety Report 24564082 (Version 1)
Quarter: 2024Q4

REPORT INFORMATION
  Report Type: Report from Study
  Country: US (occurrence: US)
  Receive Date: 20241030
  Receipt Date: 20241030
  Transmission Date: 20250114
  Serious: Yes (Other)
  Sender: ABBVIE
  Company Number: US-ABBVIE-5982407

PATIENT

DRUGS (1)
  1. SYNTHROID [Suspect]
     Active Substance: LEVOTHYROXINE SODIUM
     Indication: Product used for unknown indication
     Dosage: FORM STRENGTH: 200 MICROGRAM?START DATE TEXT: UNKNOWN?STOP DATE TEXT: UNKNOWN?DURATION TEXT: UNKNOWN
     Route: 048

REACTIONS (2)
  - Surgery [Recovering/Resolving]
  - Wheelchair user [Unknown]
